FAERS Safety Report 7883776-0 (Version None)
Quarter: 2011Q4

REPORT INFORMATION
  Report Type: 
  Country: None (occurrence: None)
  Receive Date: 20111102
  Receipt Date: 20110613
  Transmission Date: 20120403
  Serious: Yes (Other)
  Sender: FDA-Public Use
  Company Number: US-BAYER-2011-011355

PATIENT
  Age: 28 Year
  Sex: Male

DRUGS (6)
  1. LORAZEPAM [Concomitant]
  2. SORAFENIB (RAF KINASE INHIBITOR) [Suspect]
     Dosage: 400 MG, BID
     Route: 048
     Dates: start: 20110418
  3. DILAUDID [Concomitant]
  4. SORAFENIB (RAF KINASE INHIBITOR) [Suspect]
     Dosage: 400 MG, BID
  5. REMERON [Concomitant]
  6. SORAFENIB (RAF KINASE INHIBITOR) [Suspect]
     Indication: SARCOMA
     Dosage: 400 MG, BID
     Route: 048
     Dates: start: 20110131, end: 20110415

REACTIONS (6)
  - DIARRHOEA [None]
  - NAUSEA [None]
  - RASH ERYTHEMATOUS [None]
  - SARCOMA [None]
  - FATIGUE [None]
  - BLISTER [None]
